FAERS Safety Report 7652312-6 (Version None)
Quarter: 2011Q3

REPORT INFORMATION
  Report Type: 
  Country: None (occurrence: None)
  Receive Date: 20110722
  Receipt Date: 20110210
  Transmission Date: 20111222
  Serious: Yes (Hospitalization)
  Sender: FDA-Public Use
  Company Number: UTC-005190

PATIENT
  Age: 43 Year
  Sex: Female

DRUGS (2)
  1. REMODULIN [Suspect]
     Indication: COR PULMONALE CHRONIC
     Dosage: 43.2 UG/KG (0.03 UG/KG, 1 IN 1 MIN), INTRAVENOUS
     Route: 042
     Dates: start: 20100930
  2. ADCIRCA [Concomitant]

REACTIONS (1)
  - DIARRHOEA [None]
